FAERS Safety Report 7410770-6 (Version None)
Quarter: 2011Q1

REPORT INFORMATION
  Report Type: 
  Country: None (occurrence: None)
  Receive Date: 20110302
  Receipt Date: 20101223
  Transmission Date: 20110831
  Serious: Yes (Hospitalization, Disabling, Other)
  Sender: FDA-Public Use
  Company Number: 163-21880-10030438

PATIENT
  Age: 77 Year
  Sex: Female

DRUGS (22)
  1. COLACE (DOCUSATE SODIUM) [Concomitant]
  2. TAMOXIFEN CITRATE [Suspect]
     Indication: BREAST CANCER
     Dates: start: 20100801
  3. AROMASIN [Concomitant]
  4. PROTONIX [Concomitant]
  5. PRISTIQ (DESVENLAFAXINSUCCINATE) [Concomitant]
  6. BENADRYL [Concomitant]
  7. LEXAPRO [Concomitant]
  8. REMERON [Concomitant]
  9. REVLIMID [Suspect]
     Indication: REFRACTORY ANAEMIA
     Dosage: 5 MG, DAILY FOR 28 DAYS, PO, 5 MG, DAILY FOR 28 DAYS, PO
     Route: 048
     Dates: start: 20090805
  10. REVLIMID [Suspect]
     Indication: LYMPHATIC DISORDER
     Dosage: 5 MG, DAILY FOR 28 DAYS, PO, 5 MG, DAILY FOR 28 DAYS, PO
     Route: 048
     Dates: start: 20090805
  11. REVLIMID [Suspect]
     Indication: MYELODYSPLASTIC SYNDROME
     Dosage: 5 MG, DAILY FOR 28 DAYS, PO, 5 MG, DAILY FOR 28 DAYS, PO
     Route: 048
     Dates: start: 20090805
  12. REVLIMID [Suspect]
     Indication: REFRACTORY ANAEMIA
     Dosage: 5 MG, DAILY FOR 28 DAYS, PO, 5 MG, DAILY FOR 28 DAYS, PO
     Route: 048
     Dates: start: 20100120, end: 20101018
  13. REVLIMID [Suspect]
     Indication: LYMPHATIC DISORDER
     Dosage: 5 MG, DAILY FOR 28 DAYS, PO, 5 MG, DAILY FOR 28 DAYS, PO
     Route: 048
     Dates: start: 20100120, end: 20101018
  14. REVLIMID [Suspect]
     Indication: MYELODYSPLASTIC SYNDROME
     Dosage: 5 MG, DAILY FOR 28 DAYS, PO, 5 MG, DAILY FOR 28 DAYS, PO
     Route: 048
     Dates: start: 20100120, end: 20101018
  15. FEMARA [Concomitant]
  16. CELEBREX [Concomitant]
  17. IRON (IRON) [Concomitant]
  18. ASPIRIN [Concomitant]
  19. FISH OIL (FISH OIL) [Concomitant]
  20. SENNA (SENNA) [Concomitant]
  21. EXELON [Concomitant]
  22. CLONIDINE [Concomitant]

REACTIONS (6)
  - PULMONARY EMBOLISM [None]
  - DEEP VEIN THROMBOSIS [None]
  - NON-CARDIAC CHEST PAIN [None]
  - METASTASES TO LUNG [None]
  - UPPER RESPIRATORY TRACT INFECTION [None]
  - VENOUS THROMBOSIS LIMB [None]
